FAERS Safety Report 12802025 (Version 2)
Quarter: 2016Q4

REPORT INFORMATION
  Report Type: Report from Study
  Country: JP (occurrence: JP)
  Receive Date: 20161003
  Receipt Date: 20161019
  Transmission Date: 20170207
  Serious: Yes (Death, Life-Threatening)
  Sender: FDA-Public Use
  Company Number: JP-UCBSA-2016021512

PATIENT
  Age: 88 Year
  Sex: Female

DRUGS (4)
  1. LEVETIRACETAM. [Suspect]
     Active Substance: LEVETIRACETAM
     Indication: OFF LABEL USE
     Dosage: 500 MG, 3X/DAY (TID)
     Route: 041
     Dates: start: 20160416, end: 20160416
  2. E KEPPRA [Suspect]
     Active Substance: LEVETIRACETAM
     Indication: PRODUCT USED FOR UNKNOWN INDICATION
     Dosage: 500 MG, 2X/DAY (BID)
     Route: 048
     Dates: start: 20160419
  3. LEVETIRACETAM. [Suspect]
     Active Substance: LEVETIRACETAM
     Dosage: 500 MG, 2X/DAY (BID)
     Route: 041
     Dates: start: 20160417, end: 20160418
  4. LEVETIRACETAM. [Suspect]
     Active Substance: LEVETIRACETAM
     Indication: PROPHYLAXIS
     Dosage: 500 MG, 2X/DAY (BID)
     Route: 041
     Dates: start: 20160415, end: 20160415

REACTIONS (4)
  - Off label use [Unknown]
  - Subarachnoid haemorrhage [Fatal]
  - Renal impairment [Not Recovered/Not Resolved]
  - Hepatic function abnormal [Not Recovered/Not Resolved]

NARRATIVE: CASE EVENT DATE: 20160415
